FAERS Safety Report 6643032-5 (Version None)
Quarter: 2010Q1

REPORT INFORMATION
  Report Type: 
  Country: None (occurrence: None)
  Receive Date: 20100319
  Receipt Date: 20100309
  Transmission Date: 20100710
  Serious: Yes (Hospitalization)
  Sender: FDA-Public Use
  Company Number: B0640993A

PATIENT
  Sex: Male

DRUGS (6)
  1. AUGMENTIN '125' [Suspect]
     Indication: DRUG USE FOR UNKNOWN INDICATION
     Dosage: 2UNIT PER DAY
     Route: 048
     Dates: start: 20080121, end: 20080125
  2. TRIATEC [Suspect]
     Indication: DRUG USE FOR UNKNOWN INDICATION
     Dosage: 1UNIT PER DAY
     Route: 048
     Dates: start: 20080120, end: 20080125
  3. CLEXANE [Concomitant]
     Dosage: 1UNIT PER DAY
     Route: 058
     Dates: start: 20080109, end: 20080125
  4. ACETAMINOPHEN AND CODEINE PHOSPHATE [Concomitant]
     Dosage: 1UNIT PER DAY
     Route: 048
     Dates: start: 20080108, end: 20080125
  5. ADALAT [Concomitant]
  6. SEREUPIN [Concomitant]
     Dosage: 1UNIT PER DAY

REACTIONS (4)
  - DYSPHONIA [None]
  - LARYNGEAL OEDEMA [None]
  - LIP OEDEMA [None]
  - PENILE OEDEMA [None]
